FAERS Safety Report 25671038 (Version 1)
Quarter: 2025Q3

REPORT INFORMATION
  Report Type: Spontaneous
  Country: BR (occurrence: BR)
  Receive Date: 20250812
  Receipt Date: 20250812
  Transmission Date: 20251020
  Serious: Yes (Other)
  Sender: ROCHE
  Company Number: BR-ROCHE-10000354318

PATIENT
  Age: 65 Year
  Sex: Female

DRUGS (10)
  1. ATEZOLIZUMAB [Suspect]
     Active Substance: ATEZOLIZUMAB
     Indication: Small cell lung cancer
     Dosage: FOR 4 CYCLES
     Route: 065
     Dates: start: 202306, end: 202308
  2. ATEZOLIZUMAB [Suspect]
     Active Substance: ATEZOLIZUMAB
     Route: 065
  3. IRINOTECAN [Suspect]
     Active Substance: IRINOTECAN
     Indication: Small cell lung cancer
     Route: 065
  4. TARLATAMAB [Suspect]
     Active Substance: TARLATAMAB
     Indication: Small cell lung cancer
     Route: 065
  5. TARLATAMAB [Suspect]
     Active Substance: TARLATAMAB
     Route: 065
  6. ETOPOSIDE [Suspect]
     Active Substance: ETOPOSIDE
     Indication: Small cell lung cancer
     Dosage: 100MGM2 ?FROM DAY 1-DAY 3
     Route: 065
     Dates: start: 202306, end: 202308
  7. ETOPOSIDE [Suspect]
     Active Substance: ETOPOSIDE
     Route: 065
  8. CARBOPLATIN [Concomitant]
     Active Substance: CARBOPLATIN
     Indication: Small cell lung cancer
     Dosage: AREA UNDER THE CURVE: 5 ?FOR 4 CYCLES
     Dates: start: 202306, end: 202308
  9. CARBOPLATIN [Concomitant]
     Active Substance: CARBOPLATIN
  10. DEXAMETHASONE [Concomitant]
     Active Substance: DEXAMETHASONE
     Indication: Premedication

REACTIONS (5)
  - Lymphadenopathy [Unknown]
  - Central nervous system lesion [Unknown]
  - Disease progression [Unknown]
  - Superior vena cava syndrome [Unknown]
  - Dysgeusia [Unknown]

NARRATIVE: CASE EVENT DATE: 20240101
